FAERS Safety Report 20080185 (Version 4)
Quarter: 2022Q1

REPORT INFORMATION
  Report Type: Report from Study
  Country: FR (occurrence: FR)
  Receive Date: 20211117
  Receipt Date: 20220324
  Transmission Date: 20220423
  Serious: Yes (Hospitalization, Other)
  Sender: FDA-Public Use
  Company Number: US-TAKEDA-2021TUS070750

PATIENT
  Age: 68 Year
  Sex: Female

DRUGS (9)
  1. TEDUGLUTIDE [Suspect]
     Active Substance: TEDUGLUTIDE
     Indication: Short-bowel syndrome
     Dosage: 2.20 MILLIGRAM, QD
     Route: 065
     Dates: start: 20160611, end: 2016
  2. TEDUGLUTIDE [Suspect]
     Active Substance: TEDUGLUTIDE
     Indication: Short-bowel syndrome
     Dosage: 2.20 MILLIGRAM, QD
     Route: 065
     Dates: start: 20160611, end: 2016
  3. TEDUGLUTIDE [Suspect]
     Active Substance: TEDUGLUTIDE
     Indication: Short-bowel syndrome
     Dosage: 2.20 MILLIGRAM, QD
     Route: 065
     Dates: start: 20160611, end: 2016
  4. TEDUGLUTIDE [Suspect]
     Active Substance: TEDUGLUTIDE
     Indication: Short-bowel syndrome
     Dosage: 2.20 MILLIGRAM, QD
     Route: 065
     Dates: start: 20160611, end: 2016
  5. OFLOXACIN [Concomitant]
     Active Substance: OFLOXACIN
     Indication: Vascular device infection
     Dosage: 200 MILLIGRAM, BID
     Route: 048
     Dates: start: 20200904, end: 20200919
  6. OFLOXACIN [Concomitant]
     Active Substance: OFLOXACIN
     Dosage: 200 MILLIGRAM, BID
     Route: 048
     Dates: start: 20200904, end: 20200910
  7. AMIKACIN [Concomitant]
     Active Substance: AMIKACIN
     Indication: Bacterial translocation
     Dosage: UNK
     Route: 050
     Dates: start: 20200113, end: 20200210
  8. VANCOMYCIN [Concomitant]
     Active Substance: VANCOMYCIN
     Indication: Bacterial translocation
     Dosage: 1 DOSAGE FORM, QD
     Route: 042
     Dates: start: 20200113, end: 20200113
  9. PIPERACILLIN SODIUM\TAZOBACTAM SODIUM [Concomitant]
     Active Substance: PIPERACILLIN SODIUM\TAZOBACTAM SODIUM
     Indication: Bacterial translocation
     Dosage: 1 DOSAGE FORM, QD
     Route: 042
     Dates: start: 20200113, end: 20200117

REACTIONS (1)
  - Bacterial translocation [Recovered/Resolved]

NARRATIVE: CASE EVENT DATE: 20200111
